FAERS Safety Report 24183080 (Version 3)
Quarter: 2024Q3

REPORT INFORMATION
  Report Type: Spontaneous
  Country: JP (occurrence: JP)
  Receive Date: 20240807
  Receipt Date: 20240930
  Transmission Date: 20241017
  Serious: Yes (Other)
  Sender: NOVARTIS
  Company Number: JP-002147023-NVSJ2024JP009383

PATIENT
  Age: 70 Year
  Sex: Male

DRUGS (1)
  1. AFINITOR [Suspect]
     Active Substance: EVEROLIMUS
     Indication: Neuroendocrine tumour of the rectum
     Dosage: UNK
     Route: 048

REACTIONS (8)
  - Thrombosis [Unknown]
  - Interstitial lung disease [Not Recovered/Not Resolved]
  - Neuroendocrine tumour of the rectum [Unknown]
  - Malignant neoplasm progression [Unknown]
  - Pain [Unknown]
  - Metastases to lymph nodes [Unknown]
  - Metastases to bone [Unknown]
  - Skin disorder [Unknown]

NARRATIVE: CASE EVENT DATE: 20240101
